FAERS Safety Report 23966215 (Version 1)
Quarter: 2024Q2

REPORT INFORMATION
  Report Type: Spontaneous
  Country: US (occurrence: US)
  Receive Date: 20240612
  Receipt Date: 20240612
  Transmission Date: 20240716
  Serious: No
  Sender: FDA-Public Use
  Company Number: US-ELI_LILLY_AND_COMPANY-US202406005911

PATIENT
  Age: 90 Year
  Sex: Female

DRUGS (1)
  1. EMGALITY [Suspect]
     Active Substance: GALCANEZUMAB-GNLM
     Indication: Trigeminal neuralgia
     Dosage: 120 MG, UNKNOWN
     Route: 065
     Dates: start: 2023

REACTIONS (3)
  - Off label use [Unknown]
  - Weight decreased [Unknown]
  - Injection site pain [Unknown]
